FAERS Safety Report 17840914 (Version 2)
Quarter: 2020Q2

REPORT INFORMATION
  Report Type: Spontaneous
  Country: US (occurrence: US)
  Receive Date: 20200529
  Receipt Date: 20200611
  Transmission Date: 20200714
  Serious: No
  Sender: FDA-Public Use
  Company Number: US-ALLERGAN-2021280US

PATIENT
  Sex: Female

DRUGS (2)
  1. REFRESH RELIEVA [Suspect]
     Active Substance: CARBOXYMETHYLCELLULOSE SODIUM\GLYCERIN
     Indication: EYE PRURITUS
  2. REFRESH RELIEVA [Suspect]
     Active Substance: CARBOXYMETHYLCELLULOSE SODIUM\GLYCERIN
     Indication: DRY EYE
     Dosage: 1-2 DROPS IN THE AFFECTED EYE PRN
     Dates: start: 20200513

REACTIONS (15)
  - Visual impairment [Unknown]
  - Headache [Unknown]
  - Dizziness [Unknown]
  - Dry skin [Unknown]
  - Eye contusion [Not Recovered/Not Resolved]
  - Eye discharge [Not Recovered/Not Resolved]
  - Foreign body sensation in eyes [Not Recovered/Not Resolved]
  - Vitreous floaters [Not Recovered/Not Resolved]
  - Musculoskeletal pain [Unknown]
  - Dysgeusia [Unknown]
  - Eye swelling [Not Recovered/Not Resolved]
  - Drug ineffective [Unknown]
  - Abdominal discomfort [Unknown]
  - Eye pain [Not Recovered/Not Resolved]
  - Erythema of eyelid [Not Recovered/Not Resolved]
